FAERS Safety Report 4758462-6 (Version None)
Quarter: 2005Q3

REPORT INFORMATION
  Report Type: 
  Country: None (occurrence: None)
  Receive Date: 20050901
  Receipt Date: 20050825
  Transmission Date: 20060218
  Serious: Yes (Hospitalization)
  Sender: FDA-Public Use
  Company Number: NL-JNJFOC-20050303035

PATIENT
  Sex: Female
  Weight: 79 kg

DRUGS (7)
  1. INFLIXIMAB, RECOMBINANT [Suspect]
     Indication: RHEUMATOID ARTHRITIS
     Route: 042
  2. METHOTREXATE [Suspect]
     Indication: RHEUMATOID ARTHRITIS
     Route: 065
  3. PREDNISONE TAB [Suspect]
     Indication: RHEUMATOID ARTHRITIS
  4. NEORAL [Concomitant]
     Indication: RHEUMATOID ARTHRITIS
     Route: 065
  5. PANTOZOL [Concomitant]
     Route: 065
  6. ARCOXIA [Concomitant]
     Indication: PAIN
     Route: 065
  7. FOLIAMIN [Concomitant]

REACTIONS (4)
  - CYTOMEGALOVIRUS INFECTION [None]
  - DYSPNOEA [None]
  - HYPOXIA [None]
  - PNEUMONITIS [None]
